FAERS Safety Report 5609704-6 (Version None)
Quarter: 2008Q1

REPORT INFORMATION
  Report Type: 
  Country: None (occurrence: None)
  Receive Date: 20080131
  Receipt Date: 20071011
  Transmission Date: 20080703
  Serious: No
  Sender: FDA-Public Use
  Company Number: US-BAYER-200713336BCC

PATIENT
  Age: 66 Year
  Sex: Female
  Weight: 73 kg

DRUGS (1)
  1. ALEVE COLD AND SINUS [Suspect]
     Indication: COUGH
     Dosage: TOTAL DAILY DOSE: 440 MG  UNIT DOSE: 220 MG
     Route: 048
     Dates: start: 20070701

REACTIONS (2)
  - CONSTIPATION [None]
  - FAECES HARD [None]
